FAERS Safety Report 7991757-1 (Version None)
Quarter: 2011Q4

REPORT INFORMATION
  Report Type: 
  Country: None (occurrence: None)
  Receive Date: 20111219
  Receipt Date: 20111215
  Transmission Date: 20120403
  Serious: Yes (Death, Life-Threatening, Hospitalization, Other)
  Sender: FDA-Public Use
  Company Number: PHHY2011DE109680

PATIENT
  Sex: Male
  Weight: 92 kg

DRUGS (3)
  1. RASILEZ [Suspect]
     Indication: HYPERTENSION
     Dosage: 150 MG, DAILY
     Route: 048
     Dates: start: 20081022
  2. DIOVAN HCT [Suspect]
     Dosage: 1 DF (80 MG VALS AND 12.5 MG HYDRO), DAILY
     Route: 048
  3. INSULIN [Concomitant]
     Indication: DIABETES MELLITUS

REACTIONS (4)
  - CARDIOGENIC SHOCK [None]
  - INFECTION [None]
  - GLYCOSYLATED HAEMOGLOBIN INCREASED [None]
  - ACUTE MYOCARDIAL INFARCTION [None]
